FAERS Safety Report 5051854-X (Version None)
Quarter: 2006Q3

REPORT INFORMATION
  Report Type: 
  Country: None (occurrence: None)
  Receive Date: 20060712
  Receipt Date: 20060712
  Transmission Date: 20061208
  Serious: Yes (Hospitalization, Disabling)
  Sender: FDA-Public Use
  Company Number: None

PATIENT
  Age: 44 Year
  Sex: Male
  Weight: 92.0802 kg

DRUGS (6)
  1. TRAZODONE 50MG/100MG [Suspect]
     Indication: INSOMNIA
     Dosage: 50MG, PRN, PO
     Route: 048
     Dates: start: 20060214, end: 20060310
  2. NICOTINE [Concomitant]
  3. RANITIDINE [Concomitant]
  4. ETODOLAC [Concomitant]
  5. CYCLOBENZAPRINE HCL [Concomitant]
  6. MULTI-VITAMIN [Concomitant]

REACTIONS (2)
  - ERECTILE DYSFUNCTION [None]
  - PRIAPISM [None]
